FAERS Safety Report 24875151 (Version 3)
Quarter: 2025Q1

REPORT INFORMATION
  Report Type: Report from Study
  Country: JP (occurrence: JP)
  Receive Date: 20250122
  Receipt Date: 20250217
  Transmission Date: 20250408
  Serious: Yes (Hospitalization)
  Sender: DAIICHI
  Company Number: JP-DSJP-DS-2025-119521-JP

PATIENT
  Age: 9 Decade
  Sex: Male
  Weight: 43.3 kg

DRUGS (6)
  1. ENHERTU [Suspect]
     Active Substance: FAM-TRASTUZUMAB DERUXTECAN-NXKI
     Indication: HER2 positive gastric cancer
     Dosage: 4.1 MG/KG, ONCE EVERY 3 WK
     Route: 041
     Dates: start: 20241122, end: 20241122
  2. ENHERTU [Suspect]
     Active Substance: FAM-TRASTUZUMAB DERUXTECAN-NXKI
     Dosage: 5.0 MG/KG, ONCE EVERY 3 WK
     Route: 041
     Dates: start: 20241216, end: 20241216
  3. CORTICO STEROID [Concomitant]
     Indication: Antiemetic supportive care
     Route: 065
     Dates: start: 2024
  4. CORTICO STEROID [Concomitant]
     Route: 065
     Dates: start: 2024
  5. PALONOSETRON [Concomitant]
     Active Substance: PALONOSETRON
     Indication: Antiemetic supportive care
     Route: 065
     Dates: start: 2024
  6. PALONOSETRON [Concomitant]
     Active Substance: PALONOSETRON
     Route: 065
     Dates: start: 2024

REACTIONS (11)
  - Pericardial effusion [Recovering/Resolving]
  - Rash [Unknown]
  - Anaemia [Unknown]
  - Lymphocyte count decreased [Unknown]
  - Palmar-plantar erythrodysaesthesia syndrome [Unknown]
  - Decreased appetite [Unknown]
  - Malaise [Unknown]
  - Anaemia [Unknown]
  - Palmar-plantar erythrodysaesthesia syndrome [Unknown]
  - Disease progression [Unknown]
  - Underdose [Unknown]

NARRATIVE: CASE EVENT DATE: 20240101
